FAERS Safety Report 8433798-6 (Version None)
Quarter: 2012Q2

REPORT INFORMATION
  Report Type: 
  Country: None (occurrence: None)
  Receive Date: 20120613
  Receipt Date: 20120611
  Transmission Date: 20120825
  Serious: Yes (Other)
  Sender: FDA-Public Use
  Company Number: US-PFIZER INC-2012141371

PATIENT
  Age: 47 Year
  Sex: Male

DRUGS (4)
  1. PROGRAF [Concomitant]
  2. TIKOSYN [Suspect]
     Indication: ATRIAL FIBRILLATION
  3. LISINOPRIL [Concomitant]
  4. CELLCEPT [Concomitant]

REACTIONS (2)
  - ERECTILE DYSFUNCTION [None]
  - RENAL DISORDER [None]
